FAERS Safety Report 4286645-0 (Version None)
Quarter: 2004Q1

REPORT INFORMATION
  Report Type: 
  Country: None (occurrence: None)
  Receive Date: 20040206
  Receipt Date: 20000918
  Transmission Date: 20041129
  Serious: Yes (Hospitalization, Other)
  Sender: FDA-Public Use
  Company Number: WAES 00091403

PATIENT
  Age: 61 Year
  Sex: Female
  Weight: 64 kg

DRUGS (15)
  1. TYLENOL (CAPLET) [Concomitant]
  2. FIORICET TABLETS [Concomitant]
     Indication: HEADACHE
     Dates: start: 19930101
  3. FIORICET TABLETS [Concomitant]
     Indication: NECK PAIN
     Dates: start: 19930101
  4. ASPIRIN [Concomitant]
     Indication: PROPHYLAXIS
     Dates: start: 19990201, end: 19991001
  5. ZITHROMAX [Concomitant]
     Indication: SINUSITIS
  6. CIMICIFUGA [Concomitant]
  7. CELEXA [Concomitant]
     Dates: start: 20000101, end: 20010501
  8. DIPYRIDAMOLE [Concomitant]
     Indication: THROMBOSIS
     Dates: start: 19991001
  9. PREMPRO [Concomitant]
     Dates: start: 19990201, end: 19990901
  10. LASIX [Concomitant]
     Dates: start: 20000817, end: 20030301
  11. ADVIL [Concomitant]
  12. MOTRIN [Concomitant]
  13. VIOXX [Suspect]
     Indication: ARTHRALGIA
     Route: 048
     Dates: start: 19990722, end: 20000816
  14. VIOXX [Suspect]
     Route: 048
     Dates: start: 20000819, end: 20000824
  15. AMBIEN [Concomitant]
     Dates: start: 19990201

REACTIONS (58)
  - ABDOMINAL DISTENSION [None]
  - ABDOMINAL PAIN [None]
  - ABNORMAL FAECES [None]
  - ADVERSE EVENT [None]
  - ALOPECIA [None]
  - ANTIPHOSPHOLIPID ANTIBODIES POSITIVE [None]
  - APHASIA [None]
  - APHTHOUS STOMATITIS [None]
  - ARTHRALGIA [None]
  - ARTHRITIS [None]
  - ASTHENIA [None]
  - BACK PAIN [None]
  - BALANCE DISORDER [None]
  - BURNING SENSATION [None]
  - CARDIOLIPIN ANTIBODY POSITIVE [None]
  - CEREBROVASCULAR ACCIDENT [None]
  - CERVICAL CYST [None]
  - COAGULOPATHY [None]
  - CONSTIPATION [None]
  - CONVULSION [None]
  - DEPRESSION [None]
  - DIFFICULTY IN WALKING [None]
  - DRUG HYPERSENSITIVITY [None]
  - EMOTIONAL DISTRESS [None]
  - FALL [None]
  - FATIGUE [None]
  - FEELING ABNORMAL [None]
  - FEELING COLD [None]
  - FLUID RETENTION [None]
  - GINGIVAL INFECTION [None]
  - HEAD INJURY [None]
  - HEADACHE [None]
  - HERPES VIRUS INFECTION [None]
  - HOT FLUSH [None]
  - HYPERSENSITIVITY [None]
  - HYPOAESTHESIA [None]
  - INJURY [None]
  - INSOMNIA [None]
  - INTERVERTEBRAL DISC DEGENERATION [None]
  - MEMORY IMPAIRMENT [None]
  - MUSCLE CRAMP [None]
  - MYALGIA [None]
  - NAIL RIDGING [None]
  - NAUSEA [None]
  - NECK PAIN [None]
  - NEUROPATHY PERIPHERAL [None]
  - OEDEMA PERIPHERAL [None]
  - PAIN [None]
  - PAIN IN EXTREMITY [None]
  - PARAESTHESIA [None]
  - RASH [None]
  - SCIATICA [None]
  - SINUSITIS [None]
  - SPEECH DISORDER [None]
  - TRANSIENT ISCHAEMIC ATTACK [None]
  - VISION BLURRED [None]
  - VOMITING [None]
  - WEIGHT INCREASED [None]
